FAERS Safety Report 9929203 (Version 2)
Quarter: 2014Q1

REPORT INFORMATION
  Report Type: Spontaneous
  Country: DE (occurrence: DE)
  Receive Date: 20140227
  Receipt Date: 20140327
  Transmission Date: 20141002
  Serious: Yes (Death)
  Sender: FDA-Public Use
  Company Number: DE-B.I. PHARMACEUTICALS,INC./RIDGEFIELD-2014-BI-08675DE

PATIENT
  Age: 85 Year
  Sex: Female
  Weight: 78 kg

DRUGS (8)
  1. PRADAXA [Suspect]
     Indication: ATRIAL FIBRILLATION
     Dosage: 220 MG
     Route: 048
     Dates: start: 201206, end: 201402
  2. PRADAXA [Suspect]
     Dosage: 300 MG
     Route: 065
     Dates: start: 20140101, end: 20140202
  3. BISOPROLOL [Concomitant]
     Indication: BLOOD PRESSURE
     Dosage: 10 MG
     Route: 050
  4. BISOPROLOL [Concomitant]
     Indication: CARDIAC DISORDER
  5. BISOPROLOL [Concomitant]
     Indication: ATRIAL FIBRILLATION
  6. VALSARTAN [Concomitant]
     Indication: HYPERTENSION
     Dosage: 80 MG
     Route: 048
  7. CITALOPRAM [Concomitant]
     Indication: DEPRESSION
     Dosage: 20 MG
     Route: 048
  8. TILIDIN COMP.100/8 MG [Concomitant]
     Indication: SPINAL COLUMN INJURY
     Dosage: 1 ANZ
     Route: 048

REACTIONS (1)
  - Cerebral haemorrhage [Fatal]
